FAERS Safety Report 6463642-8 (Version None)
Quarter: 2009Q4

REPORT INFORMATION
  Report Type: 
  Country: None (occurrence: None)
  Receive Date: 20091201
  Receipt Date: 20091119
  Transmission Date: 20100525
  Serious: Yes (Hospitalization, Other)
  Sender: FDA-Public Use
  Company Number: PHHO2009DE14448

PATIENT
  Age: 50 Year
  Sex: Female

DRUGS (3)
  1. EXJADE [Suspect]
     Indication: MYELODYSPLASTIC SYNDROME
     Dosage: 1750 MG, QD
     Route: 048
     Dates: start: 20080124
  2. LENALIDOMIDE [Suspect]
     Indication: MYELODYSPLASTIC SYNDROME
     Dosage: 5 MG QD
     Route: 048
     Dates: start: 20070516, end: 20090414
  3. NEUPOGEN [Suspect]
     Indication: NEUTROPENIA
     Dosage: 300 UG (2 IN 1 WEEK)
     Route: 058
     Dates: start: 20081114

REACTIONS (3)
  - ACUTE MYELOID LEUKAEMIA [None]
  - DISEASE PROGRESSION [None]
  - STEM CELL TRANSPLANT [None]
